FAERS Safety Report 8847060 (Version 1)
Quarter: 2012Q4

REPORT INFORMATION
  Report Type: Spontaneous
  Country: US (occurrence: None)
  Receive Date: 20121017
  Receipt Date: 20121017
  Transmission Date: 20130627
  Serious: Yes (Hospitalization)
  Sender: FDA-Public Use
  Company Number: None

PATIENT
  Age: 50 Year
  Sex: Female

DRUGS (15)
  1. PROLEUKIN [Suspect]
     Indication: CHRONIC GRAFT VERSUS HOST DISEASE
     Dosage: 1.0X10^6 IU/m^2
     Route: 058
     Dates: start: 20120918, end: 20120923
  2. ACYCLOVIR [Concomitant]
  3. CALCIUM [Concomitant]
  4. DIAZEPAM [Concomitant]
  5. FOLIC ACID [Concomitant]
  6. FUROSEMIDE [Concomitant]
  7. GABAPENTIN [Concomitant]
  8. PAML [Concomitant]
  9. LEVOTHYROXINE [Concomitant]
  10. METOLAZONE [Concomitant]
  11. MORPHINE [Concomitant]
  12. OMEPRAZOLE [Concomitant]
  13. PREDNISONE [Concomitant]
  14. SERTRALINE [Concomitant]
  15. TRIMETHOPRIM/SULFAMETHOXAZOLE [Concomitant]

REACTIONS (6)
  - Pyrexia [None]
  - Chills [None]
  - Muscular weakness [None]
  - Back pain [None]
  - Urinary retention [None]
  - Hypotension [None]
